FAERS Safety Report 22901212 (Version 3)
Quarter: 2024Q2

REPORT INFORMATION
  Report Type: Spontaneous
  Country: CZ (occurrence: CZ)
  Receive Date: 20230904
  Receipt Date: 20240411
  Transmission Date: 20240716
  Serious: Yes (Life-Threatening, Hospitalization, Other)
  Sender: FDA-Public Use
  Company Number: CZ-SANDOZ-SDZ2023CZ000716

PATIENT
  Age: 58 Year
  Sex: Male

DRUGS (26)
  1. AZACITIDINE [Suspect]
     Active Substance: AZACITIDINE
     Indication: Acute myeloid leukaemia
     Dosage: FOURTH CYCLE
  2. VORICONAZOLE [Suspect]
     Active Substance: VORICONAZOLE
     Indication: Fungal infection
     Dates: start: 202206, end: 20220731
  3. LINEZOLID [Suspect]
     Active Substance: LINEZOLID
     Indication: Febrile neutropenia
     Dates: start: 20220727
  4. POSACONAZOLE [Suspect]
     Active Substance: POSACONAZOLE
     Indication: Bronchopulmonary aspergillosis
     Dates: start: 20220731
  5. FILGRASTIM [Suspect]
     Active Substance: FILGRASTIM
     Indication: Neutropenia
     Dates: start: 202208
  6. VANCOMYCIN [Suspect]
     Active Substance: VANCOMYCIN
     Indication: Acute myeloid leukaemia
     Dates: start: 20220709, end: 20220719
  7. VENETOCLAX [Suspect]
     Active Substance: VENETOCLAX
     Indication: Acute myeloid leukaemia
     Dosage: THIRD CYCLE
     Dates: start: 20220902
  8. AVIBACTAM SODIUM\CEFTAZIDIME [Suspect]
     Active Substance: AVIBACTAM SODIUM\CEFTAZIDIME
     Indication: Febrile neutropenia
     Dates: start: 20220709, end: 20220719
  9. MEROPENEM [Suspect]
     Active Substance: MEROPENEM
     Indication: Febrile neutropenia
     Dates: start: 20220724, end: 20220727
  10. POTASSIUM [Concomitant]
     Active Substance: POTASSIUM
     Indication: Blood potassium decreased
     Dates: start: 202208
  11. ISAVUCONAZOLE [Concomitant]
     Active Substance: ISAVUCONAZOLE
     Indication: Febrile neutropenia
     Dates: start: 20220818
  12. AMPHOTERICIN B [Concomitant]
     Active Substance: AMPHOTERICIN B
     Indication: Asthenia
     Dates: start: 20220804, end: 20220831
  13. FOSFOMYCIN [Concomitant]
     Active Substance: FOSFOMYCIN
     Indication: Febrile neutropenia
     Dates: start: 2022, end: 20220709
  14. AMIKACIN [Concomitant]
     Active Substance: AMIKACIN
     Dates: start: 2022, end: 20220709
  15. NYSTATIN [Concomitant]
     Active Substance: NYSTATIN
     Indication: Febrile neutropenia
     Dates: start: 20220724, end: 2022
  16. VANCOMYCIN [Suspect]
     Active Substance: VANCOMYCIN
     Indication: Febrile neutropenia
     Dates: start: 20220709, end: 20220719
  17. FOSFOMYCIN [Concomitant]
     Active Substance: FOSFOMYCIN
     Indication: Bronchopulmonary aspergillosis
     Dates: start: 2022, end: 20220709
  18. VENETOCLAX [Suspect]
     Active Substance: VENETOCLAX
     Indication: Acute myeloid leukaemia
     Dosage: FOURTH CYCLE
     Dates: start: 20220902
  19. VENETOCLAX [Suspect]
     Active Substance: VENETOCLAX
     Indication: Acute myeloid leukaemia
     Dosage: FIFTH CYCLE
     Dates: start: 20221116
  20. VENETOCLAX [Suspect]
     Active Substance: VENETOCLAX
     Indication: Acute myeloid leukaemia
     Dosage: SECOND CYCLE
     Dates: start: 20220709
  21. AZACITIDINE [Suspect]
     Active Substance: AZACITIDINE
     Indication: Product used for unknown indication
     Dosage: THIRD CYCLE
     Dates: start: 20220902
  22. AZACITIDINE [Suspect]
     Active Substance: AZACITIDINE
     Indication: Product used for unknown indication
     Dosage: FIFTH CYCLE
     Dates: start: 20221116
  23. AZACITIDINE [Suspect]
     Active Substance: AZACITIDINE
     Indication: Product used for unknown indication
     Dosage: FIFTH CYCLE
     Dates: start: 20221116
  24. AZACITIDINE [Suspect]
     Active Substance: AZACITIDINE
     Indication: Product used for unknown indication
     Dosage: SECOND CYCLE
     Dates: start: 20220709
  25. AZACITIDINE [Suspect]
     Active Substance: AZACITIDINE
     Indication: Product used for unknown indication
     Dosage: FIRST CYCLE
     Dates: start: 202206
  26. AVIBACTAM SODIUM\CEFTAZIDIME [Suspect]
     Active Substance: AVIBACTAM SODIUM\CEFTAZIDIME
     Indication: Febrile neutropenia
     Dates: start: 20220727

REACTIONS (12)
  - Pulmonary resection [Unknown]
  - Thrombocytopenia [Unknown]
  - Pneumonia fungal [Unknown]
  - Therapeutic product effect incomplete [Unknown]
  - Peripheral swelling [Unknown]
  - Drug ineffective [Unknown]
  - Febrile neutropenia [Unknown]
  - Mucosal disorder [Unknown]
  - C-reactive protein increased [Unknown]
  - Rash [Unknown]
  - Fungal infection [Unknown]
  - Pancytopenia [Recovered/Resolved]

NARRATIVE: CASE EVENT DATE: 20220701
